FAERS Safety Report 21532663 (Version 1)
Quarter: 2022Q4

REPORT INFORMATION
  Report Type: Report from Study
  Country: US (occurrence: US)
  Receive Date: 20221101
  Receipt Date: 20221101
  Transmission Date: 20230112
  Serious: Yes (Other)
  Sender: FDA-Public Use
  Company Number: US-ABBVIE-4182292

PATIENT
  Sex: Male

DRUGS (1)
  1. SKYRIZI [Suspect]
     Active Substance: RISANKIZUMAB-RZAA
     Indication: Rheumatoid arthritis
     Route: 058

REACTIONS (3)
  - Paranasal sinus hypersecretion [Recovered/Resolved]
  - Upper respiratory tract infection [Recovered/Resolved]
  - Sinus congestion [Recovered/Resolved]
